FAERS Safety Report 8949746 (Version 1)
Quarter: 2012Q4

REPORT INFORMATION
  Report Type: 
  Country: GB (occurrence: GB)
  Receive Date: 20121206
  Receipt Date: 20121206
  Transmission Date: 20130627
  Serious: Yes (Death, Life-Threatening, Hospitalization, Other)
  Sender: FDA-Public Use
  Company Number: PHHO2012GB005302

PATIENT
  Age: 72 Year
  Sex: Male

DRUGS (7)
  1. ACETYLSALICYLIC ACID [Suspect]
  2. BLINDED ALISKIREN [Suspect]
     Indication: CARDIOVASCULAR DISORDER
     Dosage: Code not broken
     Route: 048
     Dates: start: 20090805, end: 20111221
  3. BLINDED NO TREATMENT RECEIVED [Suspect]
     Indication: CARDIOVASCULAR DISORDER
     Dosage: Code not broken
     Route: 048
     Dates: start: 20090805, end: 20111221
  4. BLINDED PLACEBO [Suspect]
     Indication: CARDIOVASCULAR DISORDER
     Dosage: Code not broken
     Route: 048
     Dates: start: 20090805, end: 20111221
  5. GLICLAZIDE [Concomitant]
     Indication: DIABETES MELLITUS
  6. METFORMIN [Concomitant]
     Indication: DIABETES MELLITUS
  7. LANOLIN [Concomitant]
     Indication: DIABETES MELLITUS

REACTIONS (7)
  - Microcytic anaemia [Recovered/Resolved]
  - Renal failure chronic [Fatal]
  - Urinary tract infection [Fatal]
  - Sepsis [Fatal]
  - Diabetic foot [Not Recovered/Not Resolved]
  - Cholecystitis [Recovered/Resolved]
  - Angina pectoris [Recovered/Resolved]
